FAERS Safety Report 17480914 (Version 4)
Quarter: 2020Q2

REPORT INFORMATION
  Report Type: Spontaneous
  Country: US (occurrence: US)
  Receive Date: 20200302
  Receipt Date: 20200528
  Transmission Date: 20200713
  Serious: No
  Sender: FDA-Public Use
  Company Number: US-DSJP-DSU-2020-106673

PATIENT

DRUGS (2)
  1. TURALIO [Suspect]
     Active Substance: PEXIDARTINIB HYDROCHLORIDE
     Indication: SYNOVITIS
     Dosage: 400 MG, BID
     Route: 048
     Dates: start: 20191007
  2. TURALIO [Suspect]
     Active Substance: PEXIDARTINIB HYDROCHLORIDE
     Dosage: 400 MG, BID
     Route: 048
     Dates: start: 20191007

REACTIONS (4)
  - Fluid retention [Not Recovered/Not Resolved]
  - Hair colour changes [Not Recovered/Not Resolved]
  - Migraine [Recovering/Resolving]
  - Product dose omission [Not Recovered/Not Resolved]
